FAERS Safety Report 13288493 (Version 3)
Quarter: 2018Q1

REPORT INFORMATION
  Report Type: Spontaneous
  Country: US (occurrence: US)
  Receive Date: 20170302
  Receipt Date: 20180129
  Transmission Date: 20180508
  Serious: No
  Sender: FDA-Public Use
  Company Number: US-ACTELION-A-US2017-150544

PATIENT
  Age: 66 Year
  Sex: Female
  Weight: 95.24 kg

DRUGS (2)
  1. TRACLEER [Suspect]
     Active Substance: BOSENTAN
     Indication: PULMONARY ARTERIAL HYPERTENSION
     Dosage: 125 MG, BID
     Route: 048
  2. ENBREL [Concomitant]
     Active Substance: ETANERCEPT

REACTIONS (3)
  - Arthritis [Unknown]
  - Nasal congestion [Unknown]
  - Rheumatoid arthritis [Unknown]
